FAERS Safety Report 9268151 (Version 1)
Quarter: 2013Q2

REPORT INFORMATION
  Report Type: Spontaneous
  Country: US (occurrence: US)
  Receive Date: 20130502
  Receipt Date: 20130502
  Transmission Date: 20140414
  Serious: No
  Sender: FDA-Public Use
  Company Number: US-ASTRAZENECA-2013SE26692

PATIENT
  Sex: Male
  Weight: 88.5 kg

DRUGS (2)
  1. SEROQUEL [Suspect]
     Route: 048
  2. LISINOPRIL [Suspect]
     Route: 048

REACTIONS (13)
  - Arthralgia [Unknown]
  - Activities of daily living impaired [Unknown]
  - Pain [Unknown]
  - Anxiety [Unknown]
  - Depression [Unknown]
  - Feeling abnormal [Unknown]
  - Chest pain [Unknown]
  - Pain [Unknown]
  - Memory impairment [Unknown]
  - Memory impairment [Unknown]
  - Mobility decreased [Unknown]
  - Decreased interest [Unknown]
  - Emotional disorder [Unknown]
